FAERS Safety Report 25656086 (Version 1)
Quarter: 2025Q3

REPORT INFORMATION
  Report Type: Spontaneous
  Country: US (occurrence: US)
  Receive Date: 20250807
  Receipt Date: 20250807
  Transmission Date: 20251020
  Serious: Yes (Hospitalization, Other)
  Sender: INCYTE
  Company Number: US-EVENT-003808

PATIENT
  Age: 61 Year

DRUGS (1)
  1. JAKAFI [Suspect]
     Active Substance: RUXOLITINIB
     Indication: Haemophagocytic lymphohistiocytosis
     Route: 065

REACTIONS (5)
  - Bone marrow failure [Not Recovered/Not Resolved]
  - Hepatic enzyme increased [Unknown]
  - Serum ferritin increased [Unknown]
  - Drug effective for unapproved indication [Unknown]
  - Off label use [Unknown]
